FAERS Safety Report 4763838-7 (Version None)
Quarter: 2005Q3

REPORT INFORMATION
  Report Type: 
  Country: None (occurrence: None)
  Receive Date: 20050901
  Receipt Date: 20050628
  Transmission Date: 20060218
  Serious: No
  Sender: FDA-Public Use
  Company Number: 200510854BWH

PATIENT
  Age: 85 Year
  Sex: Male

DRUGS (1)
  1. LEVITRA [Suspect]
     Dosage: ORAL
     Route: 048

REACTIONS (2)
  - DEPRESSED MOOD [None]
  - ERECTILE DYSFUNCTION [None]
